FAERS Safety Report 9624312 (Version 1)
Quarter: 2013Q4

REPORT INFORMATION
  Report Type: Spontaneous
  Country: US (occurrence: GB)
  Receive Date: 20131015
  Receipt Date: 20131015
  Transmission Date: 20140711
  Serious: Yes (Other)
  Sender: FDA-Public Use
  Company Number: GB-PFIZER INC-2013292334

PATIENT
  Age: 28 Year
  Sex: Female

DRUGS (6)
  1. PHENYTOIN [Suspect]
     Indication: EPILEPSY
     Dosage: 250 MG, DAILY
     Dates: start: 1969
  2. PHENETURIDE [Interacting]
     Indication: EPILEPSY
     Dosage: 200 MG, DAILY
     Dates: start: 197005
  3. CHLORPHENIRAMINE [Interacting]
     Indication: SEASONAL ALLERGY
     Dosage: 12-16 MG DAILY
  4. PRIMIDONE [Concomitant]
     Indication: EPILEPSY
     Dosage: 750 MG, DAILY
  5. SULTHIAME [Concomitant]
     Indication: EPILEPSY
     Dosage: 300 MG, DAILY
  6. DEXAMPHETAMINE [Concomitant]
     Indication: EPILEPSY
     Dosage: 10 MG, DAILY

REACTIONS (4)
  - Drug interaction [Recovered/Resolved]
  - Toxicity to various agents [Recovered/Resolved]
  - Anticonvulsant drug level increased [Recovered/Resolved]
  - Choreoathetosis [Recovered/Resolved]
